FAERS Safety Report 11170511 (Version 2)
Quarter: 2015Q2

REPORT INFORMATION
  Report Type: Report from Study
  Country: JP (occurrence: JP)
  Receive Date: 20150608
  Receipt Date: 20150620
  Transmission Date: 20150821
  Serious: Yes (Life-Threatening, Hospitalization)
  Sender: FDA-Public Use
  Company Number: JP-009507513-1407JPN002606

PATIENT
  Age: 29 Year
  Sex: Female
  Weight: 66 kg

DRUGS (20)
  1. GONAL-F [Concomitant]
     Active Substance: FOLLITROPIN
     Dosage: 150 (UNDER 1000 UNITS), QD
     Route: 058
     Dates: start: 20100724, end: 20100727
  2. LUTORAL (CHLORMADINONE ACETATE) [Concomitant]
     Active Substance: CHLORMADINONE ACETATE\MESTRANOL
     Indication: IN VITRO FERTILISATION
     Dosage: 2 MG, TID
     Route: 048
     Dates: start: 20101012, end: 20101129
  3. PROGE DEPOT [Concomitant]
     Indication: IN VITRO FERTILISATION
     Dosage: 125 MG, ONCE
     Route: 030
     Dates: start: 20101012, end: 20101012
  4. GANIREST [Suspect]
     Active Substance: GANIRELIX ACETATE
     Indication: PREVENTION OF PREMATURE OVULATION
     Dosage: 0.25 MG, QD
     Route: 058
     Dates: start: 20100726, end: 20100730
  5. BRICANYL [Concomitant]
     Active Substance: TERBUTALINE SULFATE
     Indication: IN VITRO FERTILISATION
     Dosage: 2 MG, TID
     Route: 048
     Dates: start: 20101012, end: 20101025
  6. ESTRADIOL VALERATE. [Concomitant]
     Active Substance: ESTRADIOL VALERATE
     Indication: IN VITRO FERTILISATION
     Dosage: 2 MG, TID
     Route: 048
     Dates: start: 20101012, end: 20101129
  7. VITAMIN E [Concomitant]
     Active Substance: .ALPHA.-TOCOPHEROL
     Indication: IN VITRO FERTILISATION
     Dosage: 50 MG, TID
     Route: 048
     Dates: start: 20101012, end: 20101129
  8. PROGE DEPOT [Concomitant]
     Dosage: 125 MG,ONCE
     Route: 058
     Dates: start: 20101115, end: 20101115
  9. GONADOTROPHINE CHORIONIQUE ENDO [Concomitant]
     Indication: OVULATION INDUCTION
     Dosage: 5000 UNDER 1000 UNITS, ONCE
     Route: 051
     Dates: start: 20100731, end: 20100731
  10. PROGE DEPOT [Concomitant]
     Dosage: 125 MG, ONCE
     Route: 030
     Dates: start: 20101108, end: 20101108
  11. GONAL-F [Concomitant]
     Active Substance: FOLLITROPIN
     Indication: IN VITRO FERTILISATION
     Dosage: 300 (UNDER 1000 UNITS), ONCE
     Route: 058
     Dates: start: 20100721, end: 20100721
  12. ESTRANA [Concomitant]
     Indication: IN VITRO FERTILISATION
     Dosage: DAILY DOSE UNKNOWN (2-4 PIECES), FORMULATION: TAP
     Route: 062
     Dates: start: 20101025, end: 20101129
  13. GONAL-F [Concomitant]
     Active Substance: FOLLITROPIN
     Dosage: 225 (UNDER 1000 UNITS) QD
     Route: 058
     Dates: start: 20100722, end: 20100723
  14. PROGE DEPOT [Concomitant]
     Dosage: 125 MG, ONCE
     Route: 030
     Dates: start: 20101025, end: 20101025
  15. PROGE DEPOT [Concomitant]
     Dosage: 125 MG, ONCE
     Route: 030
     Dates: start: 20101101, end: 20101101
  16. PROGE DEPOT [Concomitant]
     Dosage: 125 MG, ONCE
     Route: 030
     Dates: start: 20101122, end: 20101122
  17. MENOTROPINS [Concomitant]
     Active Substance: MENOTROPINS
     Indication: IN VITRO FERTILISATION
     Dosage: 225 (UNDER 1000 UNIT), QD
     Route: 030
     Dates: start: 20100728, end: 20100729
  18. UTROGESTAN [Concomitant]
     Active Substance: PROGESTERONE
     Indication: IN VITRO FERTILISATION
     Dosage: 400 MG, QD
     Route: 067
     Dates: start: 20101025, end: 20101129
  19. DACTIL [Concomitant]
     Indication: IN VITRO FERTILISATION
     Dosage: 50 MG, TID
     Route: 048
     Dates: start: 20101012, end: 20101129
  20. MENOTROPINS [Concomitant]
     Active Substance: MENOTROPINS
     Dosage: 300 (UNDER 1000 UNITS), QD
     Route: 030
     Dates: start: 20100730, end: 20100730

REACTIONS (4)
  - Cervical incompetence [Recovered/Resolved]
  - Pulmonary embolism [Unknown]
  - Premature labour [Recovered/Resolved]
  - Maternal exposure before pregnancy [Recovered/Resolved]

NARRATIVE: CASE EVENT DATE: 20110316
